FAERS Safety Report 7562396-1 (Version None)
Quarter: 2011Q2

REPORT INFORMATION
  Report Type: 
  Country: None (occurrence: None)
  Receive Date: 20110525
  Receipt Date: 20110330
  Transmission Date: 20111010
  Serious: No
  Sender: FDA-Public Use
  Company Number: 326055

PATIENT
  Age: 70 Year
  Sex: Female

DRUGS (14)
  1. ASPIRIN [Concomitant]
  2. HYALURONIC ACID [Concomitant]
  3. CHONDROITIN SULFATE [Concomitant]
  4. SELES BETA (ATENOLOL) [Concomitant]
  5. CORTISONE ACETATE [Concomitant]
  6. EUTIROX (LEVOTHYROXINE SODIUM) [Concomitant]
  7. VICTOZA [Suspect]
     Indication: TYPE 2 DIABETES MELLITUS
     Dosage: 0.6 MG , 1.2 MG, 0.6 MG ; QD, SUBCUTANEOUS
     Route: 058
     Dates: start: 20110217
  8. ONGLYZA [Suspect]
     Indication: TYPE 2 DIABETES MELLITUS
     Dosage: 5 MG, 1 TAB
     Dates: start: 20101018, end: 20110217
  9. OMEPRAZOLE [Concomitant]
  10. GLYBURIDE [Suspect]
     Indication: TYPE 2 DIABETES MELLITUS
     Dosage: 5 MG, TID
     Dates: start: 20101018
  11. CARDURA [Concomitant]
  12. VALSARTAN AND HYDROCHLOROTHIAZIDE [Concomitant]
  13. PLAVIX [Concomitant]
  14. DEPONIT (GLYCERYL TRINITRATE) [Concomitant]

REACTIONS (3)
  - HYPERHIDROSIS [None]
  - ASTHENIA [None]
  - MYALGIA [None]
